FAERS Safety Report 8711739 (Version 3)
Quarter: 2013Q4

REPORT INFORMATION
  Report Type: Spontaneous
  Country: US (occurrence: US)
  Receive Date: 20120807
  Receipt Date: 20131015
  Transmission Date: 20140711
  Serious: Yes (Hospitalization)
  Sender: FDA-Public Use
  Company Number: US-BAYER-2012-076591

PATIENT
  Age: 32 Year
  Sex: Female
  Weight: 63 kg

DRUGS (10)
  1. YAZ [Suspect]
     Indication: CONTRACEPTION
     Dosage: UNK
     Dates: start: 20080908, end: 20091209
  2. YAZ [Suspect]
     Indication: ACNE
  3. YAZ [Suspect]
     Indication: PREMENSTRUAL SYNDROME
  4. GIANVI [Suspect]
     Indication: CONTRACEPTION
     Dosage: UNK
     Dates: start: 20091209, end: 20100823
  5. GIANVI [Suspect]
     Indication: ACNE
  6. GIANVI [Suspect]
     Indication: PREMENSTRUAL SYNDROME
  7. BEYAZ [Suspect]
  8. SAFYRAL [Suspect]
  9. BENZONATATE [Concomitant]
     Dosage: 200 MG, UNK
     Route: 048
  10. VICODIN [Concomitant]
     Indication: PAIN
     Dosage: 5 MG, 1-2 EVERY 6 HRS PRN

REACTIONS (8)
  - Pulmonary embolism [None]
  - Deep vein thrombosis [None]
  - Injury [None]
  - Emotional distress [None]
  - Pain [None]
  - Anxiety [None]
  - Anhedonia [None]
  - Pain [None]
